FAERS Safety Report 18492888 (Version 2)
Quarter: 2020Q4

REPORT INFORMATION
  Report Type: Spontaneous
  Country: TW (occurrence: TW)
  Receive Date: 20201112
  Receipt Date: 20201130
  Transmission Date: 20210114
  Serious: Yes (Life-Threatening, Hospitalization, Other)
  Sender: FDA-Public Use
  Company Number: TW-ACCORD-207626

PATIENT
  Age: 53 Year
  Sex: Female

DRUGS (4)
  1. TRASTUZUMAB. [Suspect]
     Active Substance: TRASTUZUMAB
     Indication: BREAST CANCER METASTATIC
     Dosage: 4 CYCLE
  2. DOXORUBICIN [Suspect]
     Active Substance: DOXORUBICIN
     Indication: BREAST CANCER STAGE III
  3. CYCLOPHOSPHAMIDE/CYCLOPHOSPHAMIDE MONOHYDRATE [Suspect]
     Active Substance: CYCLOPHOSPHAMIDE
     Indication: BREAST CANCER METASTATIC
  4. DOCETAXEL. [Suspect]
     Active Substance: DOCETAXEL
     Indication: BREAST CANCER METASTATIC

REACTIONS (6)
  - Acute respiratory distress syndrome [Recovered/Resolved]
  - Nausea [Unknown]
  - Vomiting [Unknown]
  - Pulmonary alveolar haemorrhage [Recovered/Resolved]
  - Acute pulmonary oedema [Recovered/Resolved]
  - Traumatic lung injury [Recovered/Resolved]
